FAERS Safety Report 8689488 (Version 2)
Quarter: 2013Q1

REPORT INFORMATION
  Report Type: Spontaneous
  Country: US (occurrence: US)
  Receive Date: 20120727
  Receipt Date: 20130103
  Transmission Date: 20140127
  Serious: No
  Sender: FDA-Public Use
  Company Number: US-ASTRAZENECA-2011SE77889

PATIENT
  Age: 77 Year
  Sex: Female
  Weight: 59 kg

DRUGS (17)
  1. SEROQUEL [Suspect]
     Indication: BIPOLAR DISORDER
     Route: 048
  2. SEROQUEL [Suspect]
     Indication: BIPOLAR DISORDER
     Route: 048
  3. SEROQUEL [Suspect]
     Indication: BIPOLAR DISORDER
     Route: 048
  4. TOPROL XL [Concomitant]
  5. OMEPRAZOLE [Concomitant]
  6. EFFEXOR XR [Concomitant]
  7. LITHIUM [Concomitant]
  8. TRILEPTAL [Concomitant]
  9. VIYB [Concomitant]
  10. ZOLOFT [Concomitant]
  11. SIMVASTATIN [Concomitant]
     Indication: BLOOD CHOLESTEROL INCREASED
  12. AMLODIPINE [Concomitant]
     Indication: BLOOD PRESSURE ABNORMAL
  13. LEVOTHYROXINE [Concomitant]
  14. ASPIRIN [Concomitant]
  15. BENAZEPRIL [Concomitant]
  16. MELOXICAM [Concomitant]
  17. VITAMIN B6 [Concomitant]

REACTIONS (2)
  - Mental disorder [Unknown]
  - Influenza [Recovering/Resolving]
